FAERS Safety Report 10170570 (Version 1)
Quarter: 2014Q2

REPORT INFORMATION
  Report Type: Spontaneous
  Country: US (occurrence: US)
  Receive Date: 20140513
  Receipt Date: 20140513
  Transmission Date: 20141212
  Serious: Yes (Disabling, Other)
  Sender: FDA-Public Use
  Company Number: US-AMGEN INC.-USASP2014034747

PATIENT
  Age: 71 Year
  Sex: Female

DRUGS (5)
  1. ENBREL [Suspect]
     Indication: RHEUMATOID ARTHRITIS
     Dosage: 50 MG, QWK
     Route: 065
     Dates: start: 20010129
  2. ACTONEL [Suspect]
     Indication: PRODUCT USED FOR UNKNOWN INDICATION
     Dosage: UNK
     Route: 065
  3. KINERET [Concomitant]
     Dosage: UNK
     Dates: start: 20020806, end: 20040120
  4. HUMIRA [Concomitant]
     Dosage: UNK
     Dates: start: 20040120
  5. METHOTREXATE [Concomitant]
     Dosage: UNK

REACTIONS (12)
  - Foot deformity [Not Recovered/Not Resolved]
  - Carpal tunnel syndrome [Recovered/Resolved]
  - Mobility decreased [Recovered/Resolved]
  - Pseudomonas infection [Recovered/Resolved]
  - Pain [Not Recovered/Not Resolved]
  - Malaise [Not Recovered/Not Resolved]
  - Pain in extremity [Recovered/Resolved]
  - White blood cell count increased [Unknown]
  - Peripheral swelling [Recovered/Resolved]
  - Injection site warmth [Not Recovered/Not Resolved]
  - Injection site pruritus [Not Recovered/Not Resolved]
  - Injection site erythema [Not Recovered/Not Resolved]
